FAERS Safety Report 13462204 (Version 1)
Quarter: 2017Q2

REPORT INFORMATION
  Report Type: Spontaneous
  Country: US (occurrence: US)
  Receive Date: 20170420
  Receipt Date: 20170420
  Transmission Date: 20170830
  Serious: Yes (Other)
  Sender: FDA-Public Use
  Company Number: US-JNJFOC-20170414819

PATIENT

DRUGS (2)
  1. FENTANYL. [Suspect]
     Active Substance: FENTANYL
     Indication: THERAPEUTIC HYPOTHERMIA
     Route: 065
  2. HYDROMORPHONE [Suspect]
     Active Substance: HYDROMORPHONE
     Indication: THERAPEUTIC HYPOTHERMIA
     Route: 065

REACTIONS (10)
  - Alanine aminotransferase increased [Unknown]
  - Hypocalcaemia [Unknown]
  - Off label use [Unknown]
  - Hyperglycaemia [Unknown]
  - Aspartate aminotransferase increased [Unknown]
  - Product use in unapproved indication [Unknown]
  - Hypomagnesaemia [Unknown]
  - Hypoglycaemia [Unknown]
  - Bradycardia [Unknown]
  - Hypokalaemia [Unknown]
